FAERS Safety Report 17147946 (Version 1)
Quarter: 2019Q4

REPORT INFORMATION
  Report Type: Not Available
  Country: BR (occurrence: BR)
  Receive Date: 20191212
  Receipt Date: 20191212
  Transmission Date: 20200122
  Serious: Yes (Other)
  Sender: FDA-Public Use
  Company Number: BR-TEIKOKU PHARMA USA-TPU2019-00839

PATIENT
  Age: 74 Year
  Sex: Female

DRUGS (1)
  1. TOPERMA [Suspect]
     Active Substance: LIDOCAINE
     Indication: NEURALGIA
     Route: 061

REACTIONS (3)
  - Arrhythmia [Unknown]
  - Syncope [Unknown]
  - Malaise [Unknown]

NARRATIVE: CASE EVENT DATE: 20191122
